FAERS Safety Report 12606497 (Version 1)
Quarter: 2016Q3

REPORT INFORMATION
  Report Type: Spontaneous
  Country: US (occurrence: None)
  Receive Date: 20160728
  Receipt Date: 20160728
  Transmission Date: 20161109
  Serious: No
  Sender: FDA-Public Use
  Company Number: None

PATIENT
  Age: 84 Year
  Sex: Female
  Weight: 77.11 kg

DRUGS (9)
  1. VITAMIN D3 [Concomitant]
     Active Substance: CHOLECALCIFEROL
  2. PANTOPRAZOLE SOD DR [Concomitant]
  3. POTASSIUM CHLORIDE. [Concomitant]
     Active Substance: POTASSIUM CHLORIDE
  4. BYSTOLIC [Concomitant]
     Active Substance: NEBIVOLOL HYDROCHLORIDE
  5. EYE VITAMIN AND MINERAL SUPPLEMENT [Concomitant]
  6. LUCENTIS [Concomitant]
     Active Substance: RANIBIZUMAB
  7. XARELTO [Concomitant]
     Active Substance: RIVAROXABAN
  8. HYDROCHLOROTHIAZINE [Concomitant]
  9. ELIQUIS [Suspect]
     Active Substance: APIXABAN
     Indication: ATRIAL FIBRILLATION
     Route: 048
     Dates: start: 20160526

REACTIONS (2)
  - Hyperhidrosis [None]
  - Cold sweat [None]

NARRATIVE: CASE EVENT DATE: 20160601
